FAERS Safety Report 16103742 (Version 3)
Quarter: 2019Q2

REPORT INFORMATION
  Report Type: Report from Study
  Country: US (occurrence: US)
  Receive Date: 20190322
  Receipt Date: 20190522
  Transmission Date: 20190711
  Serious: Yes (Hospitalization, Other)
  Sender: FDA-Public Use
  Company Number: US-GILEAD-2019-0398116

PATIENT
  Age: 54 Year
  Sex: Male
  Weight: 65.62 kg

DRUGS (25)
  1. ALBUTEROL HFA [Concomitant]
     Active Substance: ALBUTEROL SULFATE
  2. ALLOPURINOL. [Concomitant]
     Active Substance: ALLOPURINOL
  3. CINACALCET. [Concomitant]
     Active Substance: CINACALCET
  4. LORATADINE. [Concomitant]
     Active Substance: LORATADINE
  5. TACROLIMUS. [Concomitant]
     Active Substance: TACROLIMUS
  6. NIFEDIPINE. [Concomitant]
     Active Substance: NIFEDIPINE
  7. DOXYCYCLINE. [Concomitant]
     Active Substance: DOXYCYCLINE
  8. OXYCODONE [Concomitant]
     Active Substance: OXYCODONE
  9. RITONAVIR. [Concomitant]
     Active Substance: RITONAVIR
  10. ASPIRIN (E.C.) [Concomitant]
     Active Substance: ASPIRIN
  11. SODIUM BICARBONATE. [Concomitant]
     Active Substance: SODIUM BICARBONATE
  12. AMBRISENTAN [Suspect]
     Active Substance: AMBRISENTAN
     Indication: PRODUCT USED FOR UNKNOWN INDICATION
     Dosage: 10 MG, QD
     Route: 048
     Dates: start: 20181129
  13. KETOTIFEN [Concomitant]
     Active Substance: KETOTIFEN
  14. MELATONIN [Concomitant]
     Active Substance: MELATONIN
  15. METOPROLOL TARTRATE. [Concomitant]
     Active Substance: METOPROLOL TARTRATE
  16. MYCOPHENOLATE MOFETIL. [Concomitant]
     Active Substance: MYCOPHENOLATE MOFETIL
  17. ARTIFICIAL TEARS [GLYCEROL;HYPROMELLOSE;MACROGOL] [Concomitant]
  18. CHOLECALCIFEROL [Concomitant]
     Active Substance: CHOLECALCIFEROL
  19. DARUNAVIR [Concomitant]
     Active Substance: DARUNAVIR
  20. DOLUTEGRAVIR [Concomitant]
     Active Substance: DOLUTEGRAVIR
  21. PREDNISONE. [Concomitant]
     Active Substance: PREDNISONE
  22. VALACYCLOVIR HCL [Concomitant]
     Active Substance: VALACYCLOVIR HYDROCHLORIDE
  23. UPTRAVI [Concomitant]
     Active Substance: SELEXIPAG
  24. CLOPIDOGREL [Concomitant]
     Active Substance: CLOPIDOGREL BISULFATE
  25. TADALAFIL. [Concomitant]
     Active Substance: TADALAFIL

REACTIONS (2)
  - Renal artery stenosis [Recovered/Resolved]
  - Pneumonia [Recovered/Resolved]

NARRATIVE: CASE EVENT DATE: 20190315
